FAERS Safety Report 7243986-2 (Version None)
Quarter: 2011Q1

REPORT INFORMATION
  Report Type: 
  Country: None (occurrence: None)
  Receive Date: 20110118
  Receipt Date: 20110106
  Transmission Date: 20110831
  Serious: Yes (Death)
  Sender: FDA-Public Use
  Company Number: DKLU1067525

PATIENT
  Age: 54 Year
  Sex: Male

DRUGS (3)
  1. VINCRISTINE [Suspect]
     Indication: ACUTE LYMPHOCYTIC LEUKAEMIA
     Dosage: 2 MG MILLIGRAM(S)
  2. STEROIDS (CORTICOSTEROID NOS) [Suspect]
     Indication: ACUTE LYMPHOCYTIC LEUKAEMIA
  3. ELSPAR [Suspect]
     Indication: ACUTE LYMPHOCYTIC LEUKAEMIA

REACTIONS (1)
  - PERIPHERAL SENSORIMOTOR NEUROPATHY [None]
